FAERS Safety Report 16704601 (Version 4)
Quarter: 2019Q4

REPORT INFORMATION
  Report Type: Spontaneous
  Country: JP (occurrence: JP)
  Receive Date: 20190814
  Receipt Date: 20191129
  Transmission Date: 20200122
  Serious: Yes (Hospitalization, Other)
  Sender: FDA-Public Use
  Company Number: JP-TAKEDA-2019TUS047935

PATIENT
  Age: 66 Year
  Sex: Female
  Weight: 41.2 kg

DRUGS (7)
  1. VELCADE [Suspect]
     Active Substance: BORTEZOMIB
     Dosage: 3.6 MILLIGRAM, QD
     Route: 058
     Dates: start: 20190801, end: 20190801
  2. DEXAMETHASONE. [Concomitant]
     Active Substance: DEXAMETHASONE
     Indication: PLASMA CELL MYELOMA
     Dosage: 20 MILLIGRAM, QD
     Route: 048
     Dates: start: 20190725, end: 20190805
  3. LENALIDOMIDE [Suspect]
     Active Substance: LENALIDOMIDE
     Dosage: 10 MILLIGRAM, QD
     Route: 048
     Dates: start: 20190905, end: 20190925
  4. LENALIDOMIDE [Suspect]
     Active Substance: LENALIDOMIDE
     Indication: PLASMA CELL MYELOMA
     Dosage: 10 MILLIGRAM, QD
     Route: 048
     Dates: start: 20190725, end: 20190808
  5. VELCADE [Suspect]
     Active Substance: BORTEZOMIB
     Indication: PLASMA CELL MYELOMA
     Dosage: 3.6 MILLIGRAM, QD
     Route: 058
     Dates: start: 20190725, end: 20190725
  6. VELCADE [Suspect]
     Active Substance: BORTEZOMIB
     Dosage: 3.6 MILLIGRAM, QD
     Route: 058
     Dates: start: 20190805, end: 20190805
  7. LENALIDOMIDE [Suspect]
     Active Substance: LENALIDOMIDE
     Dosage: 10 MILLIGRAM, QD
     Route: 048
     Dates: start: 20191004, end: 20191005

REACTIONS (4)
  - Blister [Recovered/Resolved]
  - Injection site induration [Recovering/Resolving]
  - Erythema [Recovering/Resolving]
  - Injection site erythema [Recovering/Resolving]

NARRATIVE: CASE EVENT DATE: 20190805
